FAERS Safety Report 5844566-3 (Version None)
Quarter: 2008Q3

REPORT INFORMATION
  Report Type: 
  Country: None (occurrence: None)
  Receive Date: 20080814
  Receipt Date: 20080813
  Transmission Date: 20090109
  Serious: Yes (Hospitalization)
  Sender: FDA-Public Use
  Company Number: PHHO2000SE00541

PATIENT
  Sex: Female
  Weight: 53.5 kg

DRUGS (1)
  1. EXELON [Suspect]
     Dosage: 0.5-6.0 MG, BID
     Dates: start: 19990929, end: 20000102

REACTIONS (2)
  - NAUSEA [None]
  - VOMITING [None]
